FAERS Safety Report 7513373-8 (Version None)
Quarter: 2011Q2

REPORT INFORMATION
  Report Type: 
  Country: None (occurrence: None)
  Receive Date: 20110531
  Receipt Date: 20110525
  Transmission Date: 20111010
  Serious: Yes (Other)
  Sender: FDA-Public Use
  Company Number: GB-PFIZER INC-2011113657

PATIENT
  Age: 64 Year
  Sex: Male
  Weight: 101 kg

DRUGS (15)
  1. PERINDOPRIL ERBUMINE [Concomitant]
     Indication: MYOCARDIAL ISCHAEMIA
     Dosage: 5 MG, UNK
     Route: 048
     Dates: start: 20090601
  2. IBUPROFEN [Concomitant]
     Indication: PAIN
     Dosage: 600 MG, UNK
  3. PARACETAMOL [Concomitant]
     Indication: PAIN
     Dosage: 500 MG, UNK
  4. ASPIRIN [Concomitant]
     Indication: MYOCARDIAL ISCHAEMIA
     Dosage: 75 MG, 1X/DAY
     Route: 048
     Dates: start: 20081101
  5. CLOPIDOGREL [Concomitant]
     Indication: CARDIAC DISORDER
     Dosage: 75 MG, 1X/DAY
  6. PETHIDINE [Concomitant]
     Indication: PAIN
     Dosage: 100 MG, UNK
  7. BISOPROLOL [Suspect]
     Indication: MYOCARDIAL ISCHAEMIA
     Dosage: 2.5 MG, 1X/DAY
     Route: 048
     Dates: start: 20081101, end: 20100801
  8. HYDROMOL [Concomitant]
     Indication: PSORIASIS
  9. BISOPROLOL [Suspect]
     Indication: ACUTE MYOCARDIAL INFARCTION
  10. NEBIVOLOL [Concomitant]
     Dosage: 2.5 MG, UNK
  11. RAMIPRIL [Suspect]
     Indication: CARDIAC DISORDER
     Dosage: 2.5 MG, 1X/DAY
  12. PEPPERMINT OIL [Concomitant]
  13. ROSUVASTATIN [Concomitant]
     Dosage: 10 MG, 1X/DAY
  14. DERMOVATE [Concomitant]
     Indication: PSORIASIS
  15. TRAMADOL [Concomitant]
     Indication: PAIN
     Dosage: 100 MG, UNK

REACTIONS (2)
  - PSORIASIS [None]
  - OSTEOARTHRITIS [None]
